FAERS Safety Report 8356289-X (Version None)
Quarter: 2012Q2

REPORT INFORMATION
  Report Type: 
  Country: None (occurrence: None)
  Receive Date: 20120514
  Receipt Date: 20120508
  Transmission Date: 20120825
  Serious: Yes (Hospitalization)
  Sender: FDA-Public Use
  Company Number: JP-PFIZER INC-2012112353

PATIENT
  Age: 85 Year
  Sex: Male

DRUGS (4)
  1. EPLERENONE [Suspect]
     Dosage: 50 MG DAILY
     Route: 048
     Dates: start: 20110924, end: 20111230
  2. OLMESARTAN MEDOXOMIL [Concomitant]
     Dosage: 20 MG DAILY
     Route: 048
     Dates: end: 20120106
  3. LASIX [Concomitant]
     Route: 048
  4. TENORMIN [Concomitant]
     Dosage: UNK
     Route: 048

REACTIONS (3)
  - SHOCK [None]
  - BRADYCARDIA [None]
  - HYPERKALAEMIA [None]
